FAERS Safety Report 5533805-4 (Version None)
Quarter: 2007Q4

REPORT INFORMATION
  Report Type: 
  Country: None (occurrence: None)
  Receive Date: 20071204
  Receipt Date: 20071126
  Transmission Date: 20080405
  Serious: Yes (Hospitalization)
  Sender: FDA-Public Use
  Company Number: ES-GENENTECH-252174

PATIENT
  Age: 78 Year
  Sex: Male

DRUGS (2)
  1. MABTHERA [Suspect]
     Indication: AUTOIMMUNE THROMBOCYTOPENIA
     Dosage: 375 MG/M2, Q2W
     Route: 042
     Dates: start: 20071106
  2. PREDNISONE TAB [Suspect]
     Indication: AUTOIMMUNE THROMBOCYTOPENIA
     Dosage: 60 MG, UNK

REACTIONS (2)
  - APHASIA [None]
  - BLINDNESS [None]
